FAERS Safety Report 9370765 (Version 5)
Quarter: 2013Q4

REPORT INFORMATION
  Report Type: Report from Study
  Country: RU (occurrence: RU)
  Receive Date: 20130626
  Receipt Date: 20131230
  Transmission Date: 20140711
  Serious: Yes (Life-Threatening, Hospitalization)
  Sender: FDA-Public Use
  Company Number: RU-PFIZER INC-2013187946

PATIENT
  Age: 43 Year
  Sex: Female
  Weight: 62 kg

DRUGS (2)
  1. BOSUTINIB [Suspect]
     Indication: CHRONIC MYELOID LEUKAEMIA
     Dosage: 500 MG, 1X/DAY
     Route: 048
     Dates: start: 20090324, end: 20130618
  2. BOSUTINIB [Suspect]
     Indication: CHROMOSOME ANALYSIS ABNORMAL

REACTIONS (2)
  - Pericarditis [Recovered/Resolved]
  - Pleural effusion [Recovered/Resolved]
